FAERS Safety Report 5425661-X (Version None)
Quarter: 2007Q3

REPORT INFORMATION
  Report Type: 
  Country: None (occurrence: None)
  Receive Date: 20070726
  Receipt Date: 20070523
  Transmission Date: 20080115
  Serious: No
  Sender: FDA-Public Use
  Company Number: POMP-11069

PATIENT
  Age: 33 Year
  Sex: Female
  Weight: 73 kg

DRUGS (5)
  1. MYOZYME [Suspect]
     Indication: GLYCOGEN STORAGE DISEASE TYPE II
     Dosage: 20 MG/KG, Q2WKS; IV
     Route: 042
     Dates: start: 20070528
  2. MYOZYME [Suspect]
     Indication: GLYCOGEN STORAGE DISEASE TYPE II
     Dosage: 10 MG, KG, QWK; IV
     Route: 042
     Dates: start: 20070507, end: 20070521
  3. ALPHA-GLUCOSIDASE (HUMAN, RECOMBINANT, CHO CELLS, GENZYME) OR PLACEBO [Suspect]
     Indication: GLYCOGEN STORAGE DISEASE TYPE II
     Dosage: 20 MG/ KG, Q2WKS; IV
     Route: 042
     Dates: start: 20060308, end: 20060320
  4. ALPHA-GLUCOSIDASE (HUMAN, RECOMBINANT, CHO CELLS, GENZYME) OR PLACEBO [Suspect]
  5. ALPHA-GLUCOSIDASE (HUMAN, RECOMBINANT, CHO CELLS, GENZYME) OR PLACEBO [Suspect]

REACTIONS (2)
  - HEADACHE [None]
  - URTICARIA [None]
